FAERS Safety Report 13899380 (Version 1)
Quarter: 2017Q3

REPORT INFORMATION
  Report Type: Spontaneous
  Country: US (occurrence: US)
  Receive Date: 20170823
  Receipt Date: 20170823
  Transmission Date: 20171127
  Serious: No
  Sender: FDA-Public Use
  Company Number: US-JAZZ-2017-US-008190

PATIENT
  Sex: Female

DRUGS (38)
  1. VITAMIN C [Concomitant]
     Active Substance: ASCORBIC ACID
  2. VITAMIN D3 [Concomitant]
     Active Substance: CHOLECALCIFEROL
  3. HYDROCHLOROTHIAZIDE. [Concomitant]
     Active Substance: HYDROCHLOROTHIAZIDE
  4. TURMERIC                           /01079601/ [Concomitant]
     Active Substance: HERBALS\TURMERIC
  5. NICOTINAMIDE [Suspect]
     Active Substance: NIACINAMIDE
     Indication: PRODUCT USED FOR UNKNOWN INDICATION
  6. REISHI EXTRAKT [Concomitant]
  7. ATIVAN [Concomitant]
     Active Substance: LORAZEPAM
  8. SELENIUM [Concomitant]
     Active Substance: SELENIUM
  9. METROGEL [Concomitant]
     Active Substance: METRONIDAZOLE
  10. XYREM [Suspect]
     Active Substance: SODIUM OXYBATE
     Indication: CHRONIC FATIGUE SYNDROME
     Dosage: 2.25G, BID
     Route: 048
     Dates: start: 201406, end: 201406
  11. MAGNESIUM CITRATE. [Concomitant]
     Active Substance: MAGNESIUM CITRATE
  12. CALCIUM + VIT D [Concomitant]
     Active Substance: CALCIUM\VITAMIN D
  13. VITAMIN B12 [Concomitant]
     Active Substance: CYANOCOBALAMIN
  14. XYREM [Suspect]
     Active Substance: SODIUM OXYBATE
     Dosage: 2.5 G, BID
     Route: 048
     Dates: start: 201604
  15. ESTRACE [Concomitant]
     Active Substance: ESTRADIOL
  16. RESVERATROL [Concomitant]
     Active Substance: DIETARY SUPPLEMENT\RESVERATROL
  17. DHEA [Concomitant]
     Active Substance: PRASTERONE
  18. NUVARING [Concomitant]
     Active Substance: ETHINYL ESTRADIOL\ETONOGESTREL
  19. D-RIBOSE [Concomitant]
     Active Substance: DIETARY SUPPLEMENT
  20. CREATINE MONOHYDRATE [Concomitant]
     Active Substance: CREATINE MONOHYDRATE
  21. CALCIUM ASCORBATE [Concomitant]
     Active Substance: CALCIUM ASCORBATE
  22. MUCINEX [Suspect]
     Active Substance: GUAIFENESIN
     Indication: PRODUCT USED FOR UNKNOWN INDICATION
  23. RIBAGENE [Concomitant]
  24. POTASSIUM CHLORIDE. [Concomitant]
     Active Substance: POTASSIUM CHLORIDE
  25. FISH OIL [Concomitant]
     Active Substance: FISH OIL
  26. KLOR-CON [Concomitant]
     Active Substance: POTASSIUM CHLORIDE
  27. COENZYME Q10 [Concomitant]
     Active Substance: UBIDECARENONE
  28. BABY ASPIRIN [Concomitant]
     Active Substance: ASPIRIN
  29. OMEGA-3                            /01866101/ [Concomitant]
     Active Substance: OMEGA-3 FATTY ACIDS
  30. NUVIGIL [Concomitant]
     Active Substance: ARMODAFINIL
  31. ALIGN [Concomitant]
     Active Substance: BIFIDOBACTERIUM LONGUM SUBSP. INFANTIS
  32. 7-KETO-DHEA [Concomitant]
     Active Substance: 7-KETO-DEHYDROEPIANDROSTERONE
  33. ARMOUR THYROID [Concomitant]
     Active Substance: THYROID, PORCINE
  34. HUMATROPE [Concomitant]
     Active Substance: SOMATROPIN
  35. XYREM [Suspect]
     Active Substance: SODIUM OXYBATE
     Dosage: DOSE ADJUSTMENT
     Route: 048
     Dates: start: 201406, end: 201604
  36. CYANOCOBALAMIN. [Concomitant]
     Active Substance: CYANOCOBALAMIN
  37. MINIVELLE [Concomitant]
     Active Substance: ESTRADIOL
  38. NYSTATIN. [Concomitant]
     Active Substance: NYSTATIN

REACTIONS (4)
  - Nasopharyngitis [Unknown]
  - Fluid retention [Unknown]
  - Cough [Unknown]
  - Somnolence [Unknown]
